FAERS Safety Report 5979276-5 (Version None)
Quarter: 2008Q4

REPORT INFORMATION
  Report Type: 
  Country: None (occurrence: None)
  Receive Date: 20081204
  Receipt Date: 20081104
  Transmission Date: 20090506
  Serious: No
  Sender: FDA-Public Use
  Company Number: US-ABBOTT-08P-163-0485250-00

PATIENT
  Sex: Female
  Weight: 65.83 kg

DRUGS (10)
  1. TRICOR [Suspect]
     Indication: BLOOD TRIGLYCERIDES INCREASED
     Route: 048
     Dates: start: 20080901, end: 20081001
  2. TRICOR [Suspect]
     Indication: LOW DENSITY LIPOPROTEIN INCREASED
     Route: 048
     Dates: start: 20081030, end: 20081030
  3. SIMVASTATIN [Suspect]
     Indication: BLOOD TRIGLYCERIDES INCREASED
     Route: 048
     Dates: start: 20080901, end: 20080901
  4. SIMVASTATIN [Suspect]
     Indication: LOW DENSITY LIPOPROTEIN INCREASED
  5. ATORVASTATIN CALCIUM [Suspect]
     Indication: BLOOD TRIGLYCERIDES INCREASED
     Route: 048
     Dates: start: 20080901, end: 20081001
  6. ATORVASTATIN CALCIUM [Suspect]
     Indication: LOW DENSITY LIPOPROTEIN INCREASED
  7. CAPTOPRIL [Concomitant]
     Indication: BRADYCARDIA
     Dosage: UNKNOWN
  8. HYDROCHLOROTHIAZIDE [Concomitant]
     Indication: BRADYCARDIA
     Dosage: UNKNOWN
  9. OTHER MEDICATION FOR FIBROMYALGIA [Concomitant]
     Indication: FIBROMYALGIA
     Dosage: UNKNOWN
  10. OTHER MEDICATION FOR LUPUS [Concomitant]
     Indication: SYSTEMIC LUPUS ERYTHEMATOSUS
     Dosage: UNKNOWN

REACTIONS (5)
  - ASTHENIA [None]
  - MYALGIA [None]
  - NAUSEA [None]
  - VISION BLURRED [None]
  - VISUAL ACUITY REDUCED [None]
